FAERS Safety Report 10458498 (Version 2)
Quarter: 2015Q1

REPORT INFORMATION
  Report Type: Spontaneous
  Country: US (occurrence: US)
  Receive Date: 20140917
  Receipt Date: 20150119
  Transmission Date: 20150720
  Serious: Yes (Hospitalization, Other)
  Sender: FDA-Public Use
  Company Number: US-AMGEN-USASP2014070601

PATIENT
  Age: 74 Year
  Sex: Female

DRUGS (2)
  1. METHOTREXATE [Suspect]
     Active Substance: METHOTREXATE
     Indication: PRODUCT USED FOR UNKNOWN INDICATION
     Dosage: UNK
     Route: 065
  2. ENBREL [Suspect]
     Active Substance: ETANERCEPT
     Indication: RHEUMATOID ARTHRITIS
     Dosage: 50 MG, QWK
     Route: 065
     Dates: start: 2006

REACTIONS (24)
  - Ill-defined disorder [Unknown]
  - Weight gain poor [Not Recovered/Not Resolved]
  - Traumatic lung injury [Recovered/Resolved]
  - Stomatitis [Recovered/Resolved]
  - Insomnia [Not Recovered/Not Resolved]
  - Ageusia [Not Recovered/Not Resolved]
  - Rib fracture [Recovered/Resolved]
  - Hip fracture [Unknown]
  - Arthritis [Not Recovered/Not Resolved]
  - Back pain [Not Recovered/Not Resolved]
  - Limb asymmetry [Not Recovered/Not Resolved]
  - Platelet count decreased [Unknown]
  - Hip surgery [Recovered/Resolved]
  - Toxicity to various agents [Recovered/Resolved]
  - Cystitis [Unknown]
  - Asthenia [Unknown]
  - Dehydration [Recovered/Resolved]
  - Pain [Unknown]
  - Facial pain [Not Recovered/Not Resolved]
  - General symptom [Unknown]
  - Weight decreased [Recovered/Resolved]
  - Pain in extremity [Not Recovered/Not Resolved]
  - Chest pain [Not Recovered/Not Resolved]
  - Fall [Recovered/Resolved]

NARRATIVE: CASE EVENT DATE: 2014
